FAERS Safety Report 8720358 (Version 2)
Quarter: 2012Q4

REPORT INFORMATION
  Report Type: Report from Study
  Country: JP (occurrence: JP)
  Receive Date: 20120813
  Receipt Date: 20120907
  Transmission Date: 20130627
  Serious: Yes (Other)
  Sender: FDA-Public Use
  Company Number: JP-009507513-1208JPN004986

PATIENT

DRUGS (8)
  1. PEGINTRON [Suspect]
     Indication: HEPATITIS C
     Dosage: 1.5 Microgram per kilogram, qw
     Route: 058
     Dates: start: 20120515, end: 20120626
  2. PEGINTRON [Suspect]
     Dosage: 1.5 Microgram per kilogram, qw
     Route: 058
     Dates: start: 20120807
  3. REBETOL [Suspect]
     Indication: HEPATITIS C
     Dosage: 600 mg, qd
     Route: 048
     Dates: start: 20120515, end: 20120528
  4. REBETOL [Suspect]
     Dosage: 400 mg, qd
     Route: 048
     Dates: start: 20120529, end: 20120604
  5. REBETOL [Suspect]
     Dosage: 200 mg, qd
     Route: 048
     Dates: start: 20120605, end: 20120703
  6. REBETOL [Suspect]
     Dosage: 200 mg, qd
     Route: 048
     Dates: start: 20120807
  7. TELAVIC [Suspect]
     Indication: HEPATITIS C
     Dosage: Dose: 1500 mg
     Route: 048
     Dates: start: 20120515, end: 20120703
  8. SALOBEL [Concomitant]
     Dosage: Formulation: Por
     Route: 048
     Dates: start: 20120807

REACTIONS (2)
  - Pneumonia [Recovered/Resolved]
  - Rash [None]
